FAERS Safety Report 22115169 (Version 1)
Quarter: 2023Q1

REPORT INFORMATION
  Report Type: Spontaneous
  Country: US (occurrence: None)
  Receive Date: 20230318
  Receipt Date: 20230318
  Transmission Date: 20230418
  Serious: Yes (Other)
  Sender: FDA-Public Use
  Company Number: None

PATIENT
  Age: 26 Year
  Sex: Male
  Weight: 94.5 kg

DRUGS (1)
  1. CLEAR EYES MAXIMUM REDNESS RELIEF [Suspect]
     Active Substance: GLYCERIN\NAPHAZOLINE HYDROCHLORIDE
     Indication: Ocular hyperaemia
     Dosage: OTHER QUANTITY : 1 DROP(S);?FREQUENCY : 4 TIMES A DAY;?
     Route: 047
     Dates: start: 20221206, end: 20221209

REACTIONS (9)
  - Eye infection [None]
  - Cellulitis [None]
  - Eye pain [None]
  - Photophobia [None]
  - Vision blurred [None]
  - Visual impairment [None]
  - Swelling of eyelid [None]
  - Swelling face [None]
  - Hordeolum [None]

NARRATIVE: CASE EVENT DATE: 20221212
